FAERS Safety Report 22323306 (Version 1)
Quarter: 2023Q2

REPORT INFORMATION
  Report Type: Spontaneous
  Country: GB (occurrence: GB)
  Receive Date: 20230516
  Receipt Date: 20230516
  Transmission Date: 20230721
  Serious: Yes (Other)
  Sender: FDA-Public Use
  Company Number: GB-MHRA-MED-202305111746390430-DGTKS

PATIENT
  Age: 61 Year
  Sex: Male
  Weight: 83 kg

DRUGS (1)
  1. FINASTERIDE [Suspect]
     Active Substance: FINASTERIDE
     Indication: Benign prostatic hyperplasia
     Dosage: 1 X  5MG DAILY MORNING
     Dates: start: 20230319, end: 20230328

REACTIONS (1)
  - Prostate infection [Recovering/Resolving]

NARRATIVE: CASE EVENT DATE: 20230319
